FAERS Safety Report 22131591 (Version 1)
Quarter: 2023Q1

REPORT INFORMATION
  Report Type: Spontaneous
  Country: JP (occurrence: JP)
  Receive Date: 20230323
  Receipt Date: 20230323
  Transmission Date: 20230417
  Serious: Yes (Hospitalization, Other)
  Sender: FDA-Public Use
  Company Number: JP-BAYER-2023A033903

PATIENT
  Age: 78 Year
  Sex: Female

DRUGS (2)
  1. IOPAMIRON [Suspect]
     Active Substance: IOPAMIDOL
     Indication: Diagnostic procedure
     Dosage: 90 ML, ONCE
  2. IOPAMIRON [Suspect]
     Active Substance: IOPAMIDOL
     Dosage: 90 ML, ONCE

REACTIONS (3)
  - Contrast encephalopathy [Recovered/Resolved]
  - Cerebral vasoconstriction [Recovered/Resolved]
  - Peripheral venous disease [Recovered/Resolved]
